FAERS Safety Report 8127183-4 (Version None)
Quarter: 2012Q1

REPORT INFORMATION
  Report Type: 
  Country: None (occurrence: None)
  Receive Date: 20120210
  Receipt Date: 20120206
  Transmission Date: 20120608
  Serious: Yes (Hospitalization)
  Sender: FDA-Public Use
  Company Number: US-PFIZER INC-2012033229

PATIENT
  Sex: Male

DRUGS (1)
  1. SUTENT [Suspect]
     Indication: RENAL CANCER
     Dosage: 50 MG, UNK
     Dates: start: 20120119

REACTIONS (7)
  - VOMITING [None]
  - HYPOTENSION [None]
  - ASTHENIA [None]
  - DEHYDRATION [None]
  - PYREXIA [None]
  - FLUID RETENTION [None]
  - DIARRHOEA [None]
